FAERS Safety Report 8372180-7 (Version None)
Quarter: 2012Q2

REPORT INFORMATION
  Report Type: 
  Country: None (occurrence: None)
  Receive Date: 20120521
  Receipt Date: 20120511
  Transmission Date: 20120825
  Serious: Yes (Hospitalization)
  Sender: FDA-Public Use
  Company Number: US-BIOGENIDEC-2005BI019048

PATIENT
  Age: 46 Year
  Sex: Female

DRUGS (3)
  1. AVONEX [Suspect]
     Indication: MULTIPLE SCLEROSIS
     Route: 030
     Dates: start: 20030401
  2. AVONEX [Suspect]
     Route: 030
  3. AVONEX [Suspect]
     Route: 030
     Dates: start: 20050916

REACTIONS (8)
  - CHONDROPATHY [None]
  - DEPRESSION [None]
  - INJECTION SITE HAEMATOMA [None]
  - INCISION SITE INFECTION [None]
  - WEIGHT INCREASED [None]
  - SUICIDAL IDEATION [None]
  - INFECTION [None]
  - GAIT DISTURBANCE [None]
